FAERS Safety Report 17715778 (Version 1)
Quarter: 2020Q2

REPORT INFORMATION
  Report Type: Report from Study
  Country: None (occurrence: US)
  Receive Date: 20200427
  Receipt Date: 20200427
  Transmission Date: 20200714
  Serious: Yes (Other)
  Sender: FDA-Public Use
  Company Number: US-ABBVIE-19K-163-2850273-00

PATIENT
  Age: 58 Year
  Sex: Female

DRUGS (2)
  1. HUMIRA [Suspect]
     Active Substance: ADALIMUMAB
     Indication: RHEUMATOID ARTHRITIS
     Route: 058
     Dates: start: 20190710
  2. HUMIRA [Suspect]
     Active Substance: ADALIMUMAB
     Route: 058

REACTIONS (29)
  - Trigger finger [Not Recovered/Not Resolved]
  - Fatigue [Not Recovered/Not Resolved]
  - Anxiety [Unknown]
  - Chills [Unknown]
  - Tendonitis [Not Recovered/Not Resolved]
  - Musculoskeletal stiffness [Not Recovered/Not Resolved]
  - Peripheral swelling [Recovering/Resolving]
  - Gastroenteritis viral [Unknown]
  - Joint noise [Unknown]
  - Hypoaesthesia [Unknown]
  - Vomiting [Unknown]
  - Joint swelling [Not Recovered/Not Resolved]
  - Extremity contracture [Not Recovered/Not Resolved]
  - Hypersensitivity [Unknown]
  - Pyrexia [Unknown]
  - Diarrhoea [Unknown]
  - Pain in extremity [Recovering/Resolving]
  - Impaired work ability [Not Recovered/Not Resolved]
  - Dust allergy [Unknown]
  - Nasal congestion [Unknown]
  - Muscular weakness [Not Recovered/Not Resolved]
  - Stress [Unknown]
  - Impaired self-care [Not Recovered/Not Resolved]
  - Pain [Recovering/Resolving]
  - Injection site pain [Recovered/Resolved]
  - Headache [Not Recovered/Not Resolved]
  - Migraine [Unknown]
  - Carpal tunnel syndrome [Unknown]
  - Arthralgia [Not Recovered/Not Resolved]

NARRATIVE: CASE EVENT DATE: 2019
